FAERS Safety Report 8934501 (Version 1)
Quarter: 2012Q4

REPORT INFORMATION
  Report Type: 
  Country: US (occurrence: US)
  Receive Date: 20121129
  Receipt Date: 20121129
  Transmission Date: 20130627
  Serious: No
  Sender: FDA-Public Use
  Company Number: US-GLAXOSMITHKLINE-A0957732A

PATIENT
  Age: 65 Year
  Sex: Female

DRUGS (2)
  1. FLOVENT [Suspect]
     Indication: ASTHMA
     Dosage: 1PUFF Twice per day
     Route: 055
     Dates: start: 20101108, end: 20101208
  2. SEREVENT [Concomitant]

REACTIONS (4)
  - Candidiasis [Recovered/Resolved]
  - Chest pain [Unknown]
  - Oral pain [Unknown]
  - Lip blister [Unknown]
